FAERS Safety Report 4545912-3 (Version None)
Quarter: 2005Q1

REPORT INFORMATION
  Report Type: 
  Country: None (occurrence: None)
  Receive Date: 20050103
  Receipt Date: 20041221
  Transmission Date: 20050727
  Serious: Yes (Other)
  Sender: FDA-Public Use
  Company Number: 2003010421

PATIENT
  Age: 76 Year
  Sex: Female
  Weight: 63.05 kg

DRUGS (12)
  1. GEODON [Suspect]
     Indication: SCHIZOPHRENIA
     Dosage: 40 MG (2 IN 1 D), ORAL
     Route: 048
     Dates: start: 20030304, end: 20030306
  2. GEODON [Suspect]
     Indication: DEMENTIA
     Dosage: 20 MG, INTRAMUSCULAR
     Route: 030
     Dates: start: 20030303, end: 20030301
  3. AMIODARONE HCL [Suspect]
     Indication: ILL-DEFINED DISORDER
     Dates: start: 20030305
  4. ACETYLSALICYLIC ACID(ACETYLSALICYLIC AICD) [Concomitant]
  5. DILTIAZEM HYDROCHLORIDE [Concomitant]
  6. HEPARIN -FRACTION, SODIUM SALT (HEPARIN-FRACTION, SODIUM SALT) [Concomitant]
  7. FUROSEMIDE [Concomitant]
  8. ISOSORBIDE MONONITRATE [Concomitant]
  9. PNEUMOCOCCAL VACCINE (PNEUMOCOCCAL VACCINE0 [Concomitant]
  10. METOPROLOL TARTRATE (METOPROLOL TARTRATE0 [Concomitant]
  11. RAMIPRIL [Concomitant]
  12. MAGNESIUM OXIDE (MAGNESIUM OXIDE0 [Concomitant]

REACTIONS (8)
  - ATRIAL FIBRILLATION [None]
  - DILATATION ATRIAL [None]
  - ELECTROCARDIOGRAM REPOLARISATION ABNORMALITY [None]
  - MYOCARDIAL ISCHAEMIA [None]
  - SINUS BRADYCARDIA [None]
  - SUPRAVENTRICULAR EXTRASYSTOLES [None]
  - TORSADE DE POINTES [None]
  - VENTRICULAR HYPERTROPHY [None]
